FAERS Safety Report 9363983 (Version 2)
Quarter: 2013Q3

REPORT INFORMATION
  Report Type: Spontaneous
  Country: US (occurrence: US)
  Receive Date: 20130624
  Receipt Date: 20130730
  Transmission Date: 20140515
  Serious: No
  Sender: FDA-Public Use
  Company Number: US-VERTEX PHARMACEUTICALS INC-2013-007319

PATIENT
  Age: 70 Year
  Sex: Female
  Weight: 68 kg

DRUGS (8)
  1. INCIVEK [Suspect]
     Indication: HEPATITIS C
     Dosage: 750 MG, TID
     Route: 048
     Dates: start: 20130602, end: 20130727
  2. RIBAVIRIN [Suspect]
     Indication: HEPATITIS C
     Dosage: 400 MG, BID
     Route: 048
     Dates: start: 20130602
  3. RIBAVIRIN [Suspect]
     Dosage: 200 MG, BID
     Dates: start: 201307, end: 20130727
  4. PEGASYS [Suspect]
     Indication: HEPATITIS C
     Dosage: 90 ?G, QW
     Route: 058
     Dates: start: 20130602, end: 20130727
  5. NEXIUM [Concomitant]
     Indication: GASTROOESOPHAGEAL REFLUX DISEASE
     Route: 048
  6. BENICAR [Concomitant]
     Indication: HYPERTENSION
     Route: 048
  7. PROPRANOLOL [Concomitant]
     Indication: HYPERTENSION
     Route: 048
  8. PROPRANOLOL [Concomitant]
     Indication: HEART RATE INCREASED

REACTIONS (13)
  - Blood pressure decreased [Not Recovered/Not Resolved]
  - Gastrooesophageal reflux disease [Not Recovered/Not Resolved]
  - Influenza [Not Recovered/Not Resolved]
  - Pyrexia [Not Recovered/Not Resolved]
  - Malaise [Not Recovered/Not Resolved]
  - Fatigue [Not Recovered/Not Resolved]
  - Asthenia [Not Recovered/Not Resolved]
  - Rash papular [Not Recovered/Not Resolved]
  - Haemoglobin decreased [Not Recovered/Not Resolved]
  - Dysgeusia [Not Recovered/Not Resolved]
  - Nausea [Not Recovered/Not Resolved]
  - Rectal haemorrhage [Not Recovered/Not Resolved]
  - Pruritus generalised [Not Recovered/Not Resolved]
